FAERS Safety Report 5718693-5 (Version None)
Quarter: 2008Q2

REPORT INFORMATION
  Report Type: 
  Country: None (occurrence: None)
  Receive Date: 20080425
  Receipt Date: 20080414
  Transmission Date: 20081010
  Serious: Yes (Other)
  Sender: FDA-Public Use
  Company Number: US-PFIZER INC-2008033651

PATIENT
  Sex: Male
  Weight: 67.1 kg

DRUGS (3)
  1. DILANTIN [Suspect]
     Indication: GRAND MAL CONVULSION
     Route: 048
  2. DILANTIN [Suspect]
     Indication: PETIT MAL EPILEPSY
  3. PHENOBARBITAL TAB [Concomitant]

REACTIONS (3)
  - DRUG LEVEL FLUCTUATING [None]
  - GRAND MAL CONVULSION [None]
  - PETIT MAL EPILEPSY [None]
